FAERS Safety Report 8540246-4 (Version None)
Quarter: 2012Q3

REPORT INFORMATION
  Report Type: 
  Country: None (occurrence: None)
  Receive Date: 20120726
  Receipt Date: 20120719
  Transmission Date: 20120928
  Serious: Yes (Other)
  Sender: FDA-Public Use
  Company Number: CN-BAXTER-2012BAX012314

PATIENT
  Sex: Female
  Weight: 54 kg

DRUGS (2)
  1. AZITHROMYCIN [Suspect]
     Indication: ABDOMINAL PAIN
     Route: 041
     Dates: start: 20100609
  2. METRONIDAZOLE [Suspect]
     Indication: ABDOMINAL PAIN
     Route: 041
     Dates: start: 20100609, end: 20100609

REACTIONS (13)
  - LACRIMATION INCREASED [None]
  - PALPITATIONS [None]
  - APHAGIA [None]
  - ANAPHYLACTOID REACTION [None]
  - PAIN IN EXTREMITY [None]
  - HEARING IMPAIRED [None]
  - DRY THROAT [None]
  - DISCOMFORT [None]
  - OCULAR HYPERAEMIA [None]
  - LIP SWELLING [None]
  - DRY MOUTH [None]
  - PRURITUS [None]
  - EYELID FUNCTION DISORDER [None]
